FAERS Safety Report 11137547 (Version 1)
Quarter: 2015Q2

REPORT INFORMATION
  Report Type: Spontaneous
  Country: US (occurrence: US)
  Receive Date: 20150526
  Receipt Date: 20150526
  Transmission Date: 20150821
  Serious: Yes (Hospitalization, Other)
  Sender: FDA-Public Use
  Company Number: PHHY2015US059635

PATIENT
  Age: 13 Year
  Sex: Male

DRUGS (2)
  1. AMOXICILLIN. [Suspect]
     Active Substance: AMOXICILLIN
     Indication: PHARYNGITIS STREPTOCOCCAL
     Route: 065
  2. CEFTRIAXONE. [Suspect]
     Active Substance: CEFTRIAXONE
     Indication: PHARYNGITIS STREPTOCOCCAL
     Route: 065

REACTIONS (18)
  - Hypertension [Recovered/Resolved]
  - Arthralgia [Recovered/Resolved]
  - Diarrhoea haemorrhagic [Recovered/Resolved]
  - Abdominal pain [Recovered/Resolved]
  - Clostridium difficile infection [Recovering/Resolving]
  - Abdominal tenderness [Recovered/Resolved]
  - Peripheral swelling [Unknown]
  - Rash [Recovered/Resolved]
  - Henoch-Schonlein purpura [Recovered/Resolved]
  - Swelling [Unknown]
  - Palpable purpura [Recovering/Resolving]
  - Petechiae [Recovering/Resolving]
  - Hypersensitivity [Recovering/Resolving]
  - Vomiting [Recovered/Resolved]
  - Leukocytosis [Recovering/Resolving]
  - Hypoalbuminaemia [Unknown]
  - Tachycardia [Recovered/Resolved]
  - Acute kidney injury [Recovering/Resolving]
